FAERS Safety Report 8157485-7 (Version None)
Quarter: 2012Q1

REPORT INFORMATION
  Report Type: 
  Country: None (occurrence: None)
  Receive Date: 20120222
  Receipt Date: 20120214
  Transmission Date: 20120608
  Serious: Yes (Hospitalization)
  Sender: FDA-Public Use
  Company Number: US-US-EMD SERONO, INC.-7016690

PATIENT
  Sex: Female
  Weight: 79 kg

DRUGS (9)
  1. REBIF [Suspect]
     Indication: MULTIPLE SCLEROSIS
     Route: 058
     Dates: start: 20080109
  2. GABAPENTIN [Concomitant]
  3. OXYBUTYNIN [Concomitant]
  4. CARBATROL [Concomitant]
     Dosage: 400 MG IN THE MORNINGS AND 500 MG IN THE EVENINGS
  5. BACLOFEN [Concomitant]
  6. METOPROLOL TARTRATE [Concomitant]
  7. LLISINOPRIL [Concomitant]
  8. WARFARIN SODIUM [Concomitant]
  9. AMPYRA [Concomitant]

REACTIONS (6)
  - BLOOD POTASSIUM DECREASED [None]
  - PULMONARY EMBOLISM [None]
  - MULTIPLE SCLEROSIS RELAPSE [None]
  - PNEUMONIA [None]
  - BLOOD SODIUM DECREASED [None]
  - ARTERIAL OCCLUSIVE DISEASE [None]
